FAERS Safety Report 6882724-X (Version None)
Quarter: 2010Q3

REPORT INFORMATION
  Report Type: 
  Country: None (occurrence: None)
  Receive Date: 20100729
  Receipt Date: 20100719
  Transmission Date: 20110219
  Serious: Yes (Hospitalization)
  Sender: FDA-Public Use
  Company Number: US-ROCHE-716509

PATIENT
  Sex: Female
  Weight: 83 kg

DRUGS (3)
  1. PEGASYS [Suspect]
     Indication: HEPATITIS C
     Dosage: FORM: INJECTION
     Route: 065
     Dates: start: 20100101, end: 20100618
  2. COPEGUS [Suspect]
     Indication: HEPATITIS C
     Dosage: 08 TABLETS DAILY
     Route: 048
     Dates: start: 20100101, end: 20100618
  3. TRAMADOL HYDROCHLORIDE [Concomitant]

REACTIONS (3)
  - ARTERIOSCLEROSIS [None]
  - BLOOD CHOLESTEROL ABNORMAL [None]
  - MYOCARDIAL INFARCTION [None]
